FAERS Safety Report 23477897 (Version 1)
Quarter: 2024Q1

REPORT INFORMATION
  Report Type: Spontaneous
  Country: JP (occurrence: JP)
  Receive Date: 20240204
  Receipt Date: 20240204
  Transmission Date: 20240409
  Serious: No
  Sender: FDA-Public Use
  Company Number: JP-TAKEDA-2023TJP010091

PATIENT
  Age: 51 Year
  Sex: Male
  Weight: 120 kg

DRUGS (1)
  1. CABOMETYX [Suspect]
     Active Substance: CABOZANTINIB S-MALATE
     Indication: Renal cell carcinoma stage IV
     Dosage: 20 MG, QD
     Route: 048
     Dates: start: 20230118

REACTIONS (3)
  - Folliculitis [Recovering/Resolving]
  - Malaise [Not Recovered/Not Resolved]
  - Diarrhoea [Recovered/Resolved]

NARRATIVE: CASE EVENT DATE: 20230209
